FAERS Safety Report 6903839-3 (Version None)
Quarter: 2010Q3

REPORT INFORMATION
  Report Type: 
  Country: None (occurrence: None)
  Receive Date: 20100804
  Receipt Date: 20090123
  Transmission Date: 20110219
  Serious: Yes (Other)
  Sender: FDA-Public Use
  Company Number: US-PFIZER INC-2008099010

PATIENT
  Sex: Female
  Weight: 86.363 kg

DRUGS (7)
  1. LYRICA [Suspect]
     Indication: DIABETIC NEUROPATHY
     Dosage: 75 MG, 1X/DAY
     Route: 048
     Dates: start: 20080101
  2. NOVOLOG [Concomitant]
  3. RANITIDINE [Concomitant]
  4. MAGNESIUM OXIDE [Concomitant]
  5. ALLOPURINOL [Concomitant]
  6. SIMVASTATIN [Concomitant]
  7. TOPAMAX [Concomitant]

REACTIONS (2)
  - FEELING ABNORMAL [None]
  - WEIGHT INCREASED [None]
